FAERS Safety Report 21314002 (Version 4)
Quarter: 2022Q4

REPORT INFORMATION
  Report Type: Spontaneous
  Country: JP (occurrence: JP)
  Receive Date: 20220909
  Receipt Date: 20221012
  Transmission Date: 20230112
  Serious: Yes (Hospitalization)
  Sender: FDA-Public Use
  Company Number: JP-ABBVIE-22K-087-4532470-00

PATIENT
  Age: 64 Year
  Sex: Male

DRUGS (3)
  1. HUMIRA [Suspect]
     Active Substance: ADALIMUMAB
     Indication: Psoriatic arthropathy
     Route: 058
     Dates: start: 20141001, end: 201410
  2. HUMIRA [Suspect]
     Active Substance: ADALIMUMAB
     Indication: Erythrodermic psoriasis
     Route: 058
     Dates: start: 20141014, end: 20141014
  3. SECUKINUMAB [Concomitant]
     Active Substance: SECUKINUMAB
     Indication: Product used for unknown indication

REACTIONS (8)
  - Joint dislocation [Recovering/Resolving]
  - Sepsis [Unknown]
  - Eosinophilic pneumonia [Unknown]
  - Gait disturbance [Unknown]
  - Anorectal disorder [Unknown]
  - Rash [Unknown]
  - Arthritis bacterial [Unknown]
  - Pyrexia [Unknown]

NARRATIVE: CASE EVENT DATE: 20141018
